FAERS Safety Report 7572439-7 (Version None)
Quarter: 2011Q2

REPORT INFORMATION
  Report Type: 
  Country: None (occurrence: None)
  Receive Date: 20110624
  Receipt Date: 20110613
  Transmission Date: 20111010
  Serious: Yes (Death, Hospitalization)
  Sender: FDA-Public Use
  Company Number: GB-GENENTECH-319447

PATIENT
  Sex: Female

DRUGS (36)
  1. DEXAMETHASONE [Concomitant]
     Indication: ANTIINFLAMMATORY THERAPY
     Dosage: 8 MG, X1
     Route: 042
     Dates: start: 20110504, end: 20110504
  2. DEXAMETHASONE [Concomitant]
     Dosage: 8 MG, X1
     Route: 048
     Dates: start: 20110505, end: 20110505
  3. SODIUM CHLORIDE [Concomitant]
     Indication: DEHYDRATION
     Dosage: 13000 ML, UNK
     Route: 042
     Dates: start: 20110504, end: 20110521
  4. METRONIDAZOLE [Concomitant]
     Dosage: 500 MG, TID
     Route: 042
     Dates: start: 20110506, end: 20110515
  5. CORSODYL [Concomitant]
     Indication: PRODUCT USED FOR UNKNOWN INDICATION
     Dosage: 10 ML, BID
     Route: 048
     Dates: start: 20110415, end: 20110503
  6. ALBUTEROL [Concomitant]
     Indication: PRODUCT USED FOR UNKNOWN INDICATION
     Dosage: 2 PUFF, QID
     Route: 055
     Dates: start: 20110504
  7. ENSURE [Concomitant]
     Indication: MEDICAL DIET
     Dosage: UNK UNK, TID
     Route: 048
     Dates: start: 20110507, end: 20110516
  8. DIGOXIN [Concomitant]
     Dosage: 125 A?G, QD
     Route: 042
  9. ACETAMINOPHEN [Concomitant]
     Indication: ANALGESIC THERAPY
     Dosage: 1 G, X1
     Route: 048
     Dates: start: 20110415
  10. ACETAMINOPHEN [Concomitant]
     Dosage: 1 G, PRN
     Route: 048
     Dates: start: 20110504
  11. ZOPICLONE [Concomitant]
     Indication: SEDATION
     Dosage: 3.75 MG, PRN
     Route: 048
     Dates: start: 20110505
  12. ASPIRIN [Concomitant]
     Indication: THROMBOSIS PROPHYLAXIS
     Dosage: 75 MG, QD
     Route: 048
  13. GELOFUSINE [Concomitant]
     Indication: DEHYDRATION
     Dosage: 1000 ML, UNK
     Route: 042
     Dates: start: 20110504, end: 20110504
  14. FLUCONAZOLE [Concomitant]
     Indication: ANTIFUNGAL TREATMENT
     Dosage: 100 MG, QD
     Route: 048
     Dates: start: 20110415, end: 20110503
  15. ENOXAPARIN SODIUM [Concomitant]
     Indication: THROMBOSIS PROPHYLAXIS
     Dosage: 40 MG, BID
     Route: 058
  16. OXYGEN [Concomitant]
     Indication: OXYGEN SUPPLEMENTATION
     Dosage: 90-98
     Route: 055
     Dates: start: 20110504
  17. DIGOXIN [Concomitant]
     Indication: ARRHYTHMIA
     Dosage: 100 A?G, QAM
     Route: 042
  18. LANSOPRAZOL [Concomitant]
     Indication: ANTACID THERAPY
     Dosage: 30 MG, QAM
     Route: 048
  19. COTRIM [Concomitant]
     Indication: ANTIBIOTIC THERAPY
     Dosage: 480 MG, BID
     Route: 048
     Dates: start: 20110415, end: 20110503
  20. CYCLOPHOSPHAMIDE [Suspect]
     Indication: B-CELL LYMPHOMA
     Dosage: 1000 MG, UNK
     Route: 042
     Dates: start: 20110415, end: 20110415
  21. METRONIDAZOLE [Concomitant]
     Indication: ANTIBIOTIC THERAPY
     Dosage: 500 MG, QAM
     Route: 042
     Dates: start: 20110506, end: 20110516
  22. FORTISIP [Concomitant]
     Indication: MEDICAL DIET
     Dosage: UNK UNK, TID
     Route: 048
     Dates: start: 20110506
  23. ONDANSETRON [Concomitant]
     Indication: ANTIEMETIC SUPPORTIVE CARE
     Dosage: UNK
     Route: 048
     Dates: start: 20110504
  24. PIPERACILLIN AND TAZOBACTAM [Concomitant]
     Indication: ANTIBIOTIC THERAPY
     Dosage: 4.5 MG, BID
     Route: 042
     Dates: start: 20110504, end: 20110510
  25. OMEPRAZOLE [Concomitant]
     Indication: ANTACID THERAPY
     Dosage: 20 MG, QD
     Route: 048
     Dates: start: 20110415, end: 20110503
  26. ALLOPURINOL [Concomitant]
     Indication: GOUT
     Dosage: 300 MG, QD
     Route: 048
     Dates: start: 20110415, end: 20110422
  27. VINCRISTINE [Suspect]
     Indication: B-CELL LYMPHOMA
     Dosage: 2 MG, SINGLE
     Route: 042
     Dates: start: 20110415
  28. VANCOMYCINE HYDROCHLORIDE [Concomitant]
     Indication: ANTIBIOTIC THERAPY
     Dosage: 125 MG, QAM
     Route: 042
     Dates: start: 20110516
  29. LANSOPRAZOL [Concomitant]
     Dosage: 15 MG, QD
     Route: 048
  30. ONDANSETRON [Concomitant]
     Dosage: 8 MG, BID
     Route: 048
     Dates: start: 20110415, end: 20110415
  31. GENTAMYCIN SULFATE [Concomitant]
     Indication: PRODUCT USED FOR UNKNOWN INDICATION
     Dosage: 180 MG, X1
     Route: 042
     Dates: start: 20110504, end: 20110504
  32. RITUXIMAB [Suspect]
     Indication: B-CELL LYMPHOMA
     Dosage: 700 MG, UNK
     Route: 042
     Dates: start: 20110415, end: 20110415
  33. FORTIJUICE [Concomitant]
     Indication: MEDICAL DIET
     Dosage: 200 ML, TID
     Route: 048
     Dates: start: 20110516
  34. ENOXAPARIN SODIUM [Concomitant]
     Indication: THROMBOSIS PROPHYLAXIS
     Dosage: 20 MG, QD
     Route: 058
     Dates: start: 20110505, end: 20110512
  35. PREDNISOLONE [Suspect]
     Indication: B-CELL LYMPHOMA
     Dosage: 70 MG, QD
     Route: 048
     Dates: start: 20110415, end: 20110419
  36. CHLORPHENIRAMINE MALEATE [Concomitant]
     Indication: ANTIALLERGIC THERAPY
     Dosage: 4 MG, X1
     Route: 048
     Dates: start: 20110415, end: 20110415

REACTIONS (5)
  - SMALL INTESTINAL OBSTRUCTION [None]
  - HAEMATEMESIS [None]
  - LOWER RESPIRATORY TRACT INFECTION [None]
  - GASTRIC HAEMORRHAGE [None]
  - SEPSIS [None]
